FAERS Safety Report 11465360 (Version 1)
Quarter: 2015Q3

REPORT INFORMATION
  Report Type: Spontaneous
  Country: BR (occurrence: BR)
  Receive Date: 20150907
  Receipt Date: 20150907
  Transmission Date: 20151125
  Serious: Yes (Other)
  Sender: FDA-Public Use
  Company Number: BR-ACCORD-033421

PATIENT
  Age: 38 Year
  Sex: Male
  Weight: 71.3 kg

DRUGS (7)
  1. PACLITAXEL/PACLITAXEL LIPOSOME [Suspect]
     Active Substance: PACLITAXEL
     Indication: ANAL CANCER
     Dosage: 175MG/M2 (320MG)
     Route: 042
     Dates: start: 20150814, end: 20150814
  2. NAUSEDRON TEUTO/CRISTELIA [Concomitant]
     Active Substance: ONDANSETRON HYDROCHLORIDE
     Indication: PROPHYLAXIS
     Dosage: 1 AMPOULE
     Route: 042
     Dates: start: 20150814, end: 20150814
  3. DIFENIDRIN UNION CHEMICAL [Concomitant]
     Indication: PROPHYLAXIS
     Dosage: 1 AMPOULE
     Route: 042
     Dates: start: 20150814, end: 20150814
  4. DEXAMETHASONE. [Concomitant]
     Active Substance: DEXAMETHASONE
     Indication: PROPHYLAXIS
     Dates: start: 20150814, end: 20150814
  5. SALINE BAXTER [Concomitant]
     Indication: PROPHYLAXIS
     Dosage: 1 BOTTLE
     Route: 042
     Dates: start: 20150814, end: 20150814
  6. RANITIDINE HYPOFARMA [Concomitant]
     Indication: PROPHYLAXIS
     Dosage: 50 MG/2 ML 1 AMPOULE
     Route: 042
     Dates: start: 20150814, end: 20150814
  7. CARBOPLATIN. [Concomitant]
     Active Substance: CARBOPLATIN
     Dosage: AUC 5 (460MG).

REACTIONS (4)
  - Respiratory distress [Recovered/Resolved]
  - Malaise [Recovered/Resolved]
  - Off label use [Unknown]
  - Pallor [Recovered/Resolved]

NARRATIVE: CASE EVENT DATE: 20150814
